FAERS Safety Report 14716859 (Version 2)
Quarter: 2018Q2

REPORT INFORMATION
  Report Type: Report from Study
  Country: None (occurrence: US)
  Receive Date: 20180404
  Receipt Date: 20180514
  Transmission Date: 20180711
  Serious: Yes (Death, Hospitalization, Other)
  Sender: FDA-Public Use
  Company Number: US-BAUSCH-BL-2018-009378

PATIENT
  Age: 52 Year
  Sex: Male
  Weight: 86.71 kg

DRUGS (1)
  1. XIFAXAN [Suspect]
     Active Substance: RIFAXIMIN
     Indication: HEPATIC CIRRHOSIS
     Route: 048

REACTIONS (7)
  - Hepatic failure [Fatal]
  - Cirrhosis alcoholic [Unknown]
  - Thinking abnormal [Unknown]
  - Ill-defined disorder [Unknown]
  - Hospice care [Unknown]
  - Malaise [Unknown]
  - Condition aggravated [Unknown]

NARRATIVE: CASE EVENT DATE: 201704
